FAERS Safety Report 18515108 (Version 1)
Quarter: 2020Q4

REPORT INFORMATION
  Report Type: Other
  Country: DE (occurrence: DE)
  Receive Date: 20201118
  Receipt Date: 20201118
  Transmission Date: 20210114
  Serious: Yes (Hospitalization)
  Sender: FDA-Public Use
  Company Number: DE-ROCHE-2712812

PATIENT
  Age: 30 Year
  Sex: Female
  Weight: 81 kg

DRUGS (17)
  1. FAMENITA [Concomitant]
     Active Substance: PROGESTERONE
     Dates: start: 20200404, end: 20200414
  2. ACICLOVIR [Concomitant]
     Active Substance: ACYCLOVIR
     Dates: start: 20201026, end: 20201031
  3. GLATIRAMER ACETATE. [Suspect]
     Active Substance: GLATIRAMER ACETATE
     Indication: PRODUCT USED FOR UNKNOWN INDICATION
     Route: 065
  4. VAGIFLOR (GERMANY) [Concomitant]
     Dates: start: 20201023, end: 20201025
  5. PARACETAMOL [Concomitant]
     Active Substance: ACETAMINOPHEN
     Dates: start: 20201106
  6. AZITHROMYCIN ANHYDROUS. [Concomitant]
     Active Substance: AZITHROMYCIN ANHYDROUS
     Dates: start: 20201101, end: 20201103
  7. CLOMIFENE [Concomitant]
     Active Substance: CLOMIPHENE
     Dates: start: 20200325, end: 20200330
  8. CORTISON [Concomitant]
     Active Substance: CORTISONE ACETATE
     Dates: start: 20201026, end: 20201027
  9. AMPICILIN [Concomitant]
     Active Substance: AMPICILLIN
     Dates: start: 20201026, end: 20201103
  10. PARACETAMOL [Concomitant]
     Active Substance: ACETAMINOPHEN
     Dates: start: 20201026, end: 20201103
  11. OCRELIZUMAB. [Suspect]
     Active Substance: OCRELIZUMAB
     Indication: PRODUCT USED FOR UNKNOWN INDICATION
     Route: 065
  12. MAGNESIUM [Concomitant]
     Active Substance: MAGNESIUM
     Dates: start: 20201104
  13. CEFUROXIM [Concomitant]
     Active Substance: CEFUROXIME
     Dates: start: 20201026, end: 20201103
  14. MAGNESIUM [Concomitant]
     Active Substance: MAGNESIUM
     Dates: start: 20200608, end: 20201026
  15. ADALAT [Concomitant]
     Active Substance: NIFEDIPINE
     Dates: start: 20201026, end: 20201030
  16. VAGIFLOR (GERMANY) [Concomitant]
     Dates: start: 20201110
  17. PANTOPRAZOLE [Concomitant]
     Active Substance: PANTOPRAZOLE
     Dates: start: 20201104

REACTIONS (2)
  - Ureaplasma infection [Recovered/Resolved]
  - Maternal exposure during pregnancy [Unknown]

NARRATIVE: CASE EVENT DATE: 20201101
